FAERS Safety Report 13585492 (Version 1)
Quarter: 2017Q2

REPORT INFORMATION
  Report Type: Spontaneous
  Country: FR (occurrence: FR)
  Receive Date: 20170526
  Receipt Date: 20170526
  Transmission Date: 20170830
  Serious: Yes (Other)
  Sender: FDA-Public Use
  Company Number: FR-PFIZER INC-2017226146

PATIENT
  Age: 38 Year
  Sex: Female

DRUGS (2)
  1. PAMIDRONATDINATRIUM HOSPIRA [Suspect]
     Active Substance: PAMIDRONATE DISODIUM
     Indication: INTERVERTEBRAL DISCITIS
     Dosage: 90 MG, CYCLIC
     Route: 041
     Dates: start: 20170316, end: 20170316
  2. PAMIDRONATDINATRIUM HOSPIRA [Suspect]
     Active Substance: PAMIDRONATE DISODIUM
     Dosage: 90 MG, CYCLIC
     Route: 041
     Dates: start: 20170412, end: 20170412

REACTIONS (1)
  - Injection site thrombosis [Recovered/Resolved]

NARRATIVE: CASE EVENT DATE: 20170318
